FAERS Safety Report 23983034 (Version 2)
Quarter: 2024Q3

REPORT INFORMATION
  Report Type: Spontaneous
  Country: US (occurrence: US)
  Receive Date: 20240617
  Receipt Date: 20240708
  Transmission Date: 20241016
  Serious: No
  Sender: CALLIDITAS THERAPEUTICS
  Company Number: US-Calliditas-2024CAL01008

PATIENT
  Age: 32 Year
  Sex: Female

DRUGS (1)
  1. TARPEYO [Suspect]
     Active Substance: BUDESONIDE
     Indication: IgA nephropathy
     Route: 048
     Dates: start: 20240219

REACTIONS (5)
  - Lipids increased [Unknown]
  - Blood uric acid increased [Unknown]
  - Polymenorrhoea [Unknown]
  - Intermenstrual bleeding [Unknown]
  - Premenstrual pain [Unknown]

NARRATIVE: CASE EVENT DATE: 20240301
